FAERS Safety Report 4765863-9 (Version None)
Quarter: 2005Q3

REPORT INFORMATION
  Report Type: 
  Country: None (occurrence: None)
  Receive Date: 20050908
  Receipt Date: 20050908
  Transmission Date: 20060218
  Serious: Yes (Other)
  Sender: FDA-Public Use
  Company Number: None

PATIENT
  Age: 77 Year
  Sex: Female
  Weight: 78.0187 kg

DRUGS (4)
  1. LUNESTA [Suspect]
     Indication: SLEEP DISORDER
     Dosage: 1 MG DAILY AT BEDTIME
     Dates: start: 20050821, end: 20050823
  2. ACEBUTALOL [Concomitant]
  3. SKELAXIN [Concomitant]
  4. ATARAX [Concomitant]

REACTIONS (8)
  - DISTURBANCE IN ATTENTION [None]
  - INSOMNIA [None]
  - IRRITABILITY [None]
  - OEDEMA GENITAL [None]
  - PRURITUS GENERALISED [None]
  - SWELLING [None]
  - URINARY TRACT DISORDER [None]
  - URINE OUTPUT INCREASED [None]
